FAERS Safety Report 6257382-8 (Version None)
Quarter: 2009Q3

REPORT INFORMATION
  Report Type: 
  Country: None (occurrence: None)
  Receive Date: 20090701
  Receipt Date: 20090701
  Transmission Date: 20100115
  Serious: Yes (Disabling)
  Sender: FDA-Public Use
  Company Number: None

PATIENT
  Sex: Female
  Weight: 59.8748 kg

DRUGS (1)
  1. MIRENA [Suspect]
     Indication: CONTRACEPTION
     Dates: start: 20080501, end: 20090630

REACTIONS (4)
  - DISCOMFORT [None]
  - IUD MIGRATION [None]
  - MUSCLE SPASMS [None]
  - UTERINE RUPTURE [None]
